FAERS Safety Report 5739805-3 (Version None)
Quarter: 2008Q2

REPORT INFORMATION
  Report Type: 
  Country: None (occurrence: None)
  Receive Date: 20080516
  Receipt Date: 20080415
  Transmission Date: 20081010
  Serious: No
  Sender: FDA-Public Use
  Company Number: US-BAYER-200812679NA

PATIENT
  Age: 25 Year
  Sex: Female
  Weight: 68 kg

DRUGS (2)
  1. MIRENA [Suspect]
     Indication: CONTRACEPTION
     Route: 015
     Dates: start: 20080121
  2. VALTREX [Concomitant]
     Indication: HERPES VIRUS INFECTION
     Dates: start: 20061201

REACTIONS (1)
  - SUPPRESSED LACTATION [None]
